FAERS Safety Report 8273503-X (Version None)
Quarter: 2012Q2

REPORT INFORMATION
  Report Type: 
  Country: None (occurrence: None)
  Receive Date: 20120411
  Receipt Date: 20120329
  Transmission Date: 20120825
  Serious: Yes (Hospitalization)
  Sender: FDA-Public Use
  Company Number: JP-UCBSA-054273

PATIENT
  Age: 58 Year
  Sex: Female

DRUGS (13)
  1. ALFACALCIDOL [Concomitant]
     Dosage: DAILY DOSE : 1 MCG
     Dates: start: 20110212
  2. CERTOLIZUMAB PEGOL [Suspect]
     Indication: RHEUMATOID ARTHRITIS
     Route: 058
     Dates: start: 20091218
  3. AROTINOLOL HYDROCHLORIDE [Concomitant]
     Dosage: DAILY DOSE : 5 MG
     Dates: start: 20110130
  4. GARENOXACIN MESILATE HYDRATE [Concomitant]
     Dosage: TOTAL DAILY DOSE: 40 MG
     Dates: start: 20120301
  5. BETAMETHASONE [Suspect]
     Indication: RHEUMATOID ARTHRITIS
     Dosage: DAILY DOSE : 0.5 MG
     Route: 048
     Dates: start: 20081219
  6. DICLOFENAC SODIUM [Concomitant]
     Dosage: DAILY DOSE : 75 MG
     Dates: start: 20101218
  7. BENIDIPINE HYDROCHLORIDE [Concomitant]
     Dosage: DAILY DOSE : 4 MG
     Dates: start: 20110130
  8. ACTONEL [Suspect]
     Indication: OSTEOPOROSIS
     Route: 048
     Dates: start: 20090515, end: 20120314
  9. FOLIC ACID [Concomitant]
     Dates: start: 20081003
  10. METHOTREXATE [Concomitant]
     Dates: start: 20080905
  11. SULFAMETHOXAZOLE AND TRIMETHOPRIM [Concomitant]
     Dosage: 8 TABLETS/WEEK
     Dates: start: 20091209
  12. ROSUVASTATIN CALCIUM [Concomitant]
     Dosage: DAILY DOSE : 20 MG
     Dates: start: 20090512
  13. TERIPARATIDE ACETATE [Concomitant]
     Route: 058
     Dates: start: 20120315

REACTIONS (1)
  - FEMUR FRACTURE [None]
